FAERS Safety Report 9608904 (Version 1)
Quarter: 2013Q4

REPORT INFORMATION
  Report Type: Spontaneous
  Country: CH (occurrence: CH)
  Receive Date: 20131009
  Receipt Date: 20131009
  Transmission Date: 20140711
  Serious: Yes (Life-Threatening, Other)
  Sender: FDA-Public Use
  Company Number: CH-ROXANE LABORATORIES, INC.-2013-RO-01623RO

PATIENT
  Age: 52 Year
  Sex: Female

DRUGS (2)
  1. MYCOPHENOLATE MOFETIL [Suspect]
     Indication: MYOCARDITIS
     Dosage: 360 MG
  2. SIROLIMUS [Suspect]
     Indication: MYOCARDITIS
     Dosage: 1 MG

REACTIONS (4)
  - Toxicity to various agents [Recovered/Resolved]
  - Gastrointestinal toxicity [Recovered/Resolved]
  - Cytomegalovirus infection [Recovered/Resolved]
  - Epstein-Barr virus infection [Recovered/Resolved]
